FAERS Safety Report 23559277 (Version 1)
Quarter: 2024Q1

REPORT INFORMATION
  Report Type: Spontaneous
  Country: US (occurrence: None)
  Receive Date: 20240222
  Receipt Date: 20240222
  Transmission Date: 20240410
  Serious: Yes (Life-Threatening, Hospitalization)
  Sender: FDA-Public Use
  Company Number: None

PATIENT
  Age: 82 Year
  Sex: Male
  Weight: 93 kg

DRUGS (13)
  1. YERVOY [Suspect]
     Active Substance: IPILIMUMAB
     Indication: Metastatic malignant melanoma
     Route: 042
  2. OPDIVO [Suspect]
     Active Substance: NIVOLUMAB
     Indication: Metastatic malignant melanoma
     Route: 042
  3. ACYCLOVIR [Concomitant]
     Active Substance: ACYCLOVIR
  4. Vitamin D3 250 mcg [Concomitant]
  5. Coenzyme Q10 PO [Concomitant]
  6. Vitamin K2 PO [Concomitant]
  7. Metoprolol SR 25 mg [Concomitant]
  8. OMEPRAZOLE [Concomitant]
     Active Substance: OMEPRAZOLE
  9. PREDNISONE [Concomitant]
     Active Substance: PREDNISONE
  10. Rutin 50 mg [Concomitant]
  11. BACTRIM DS [Concomitant]
     Active Substance: SULFAMETHOXAZOLE\TRIMETHOPRIM
  12. TAMSULOSIN [Concomitant]
     Active Substance: TAMSULOSIN
  13. Theragan-M mulitivitamin [Concomitant]

REACTIONS (15)
  - Oesophagitis [None]
  - Troponin increased [None]
  - Liver function test increased [None]
  - Immune-mediated myocarditis [None]
  - Coronary artery disease [None]
  - Dysphagia [None]
  - Pollakiuria [None]
  - Neck pain [None]
  - Dysphagia [None]
  - Asthenia [None]
  - Hiatus hernia [None]
  - Duodenal ulcer [None]
  - Myasthenia gravis [None]
  - Myocarditis [None]
  - Myositis [None]

NARRATIVE: CASE EVENT DATE: 20240220
